FAERS Safety Report 5712427-6 (Version None)
Quarter: 2008Q2

REPORT INFORMATION
  Report Type: 
  Country: None (occurrence: None)
  Receive Date: 20080422
  Receipt Date: 20080417
  Transmission Date: 20081010
  Serious: Yes (Hospitalization)
  Sender: FDA-Public Use
  Company Number: IT-WYE-H03467208

PATIENT
  Age: 56 Year
  Sex: Female

DRUGS (16)
  1. SIROLIMUS [Suspect]
     Indication: PROPHYLAXIS AGAINST TRANSPLANT REJECTION
     Dosage: 6 MG ON POSTOPERATIVE DAY
     Dates: start: 20050101, end: 20050101
  2. SIROLIMUS [Suspect]
     Dosage: 2 MG/D WITH ASSESSMENT BASED ON BLOOD LEVEL
     Dates: start: 20050101, end: 20050101
  3. SIROLIMUS [Suspect]
     Dosage: 15 MG FOR 1 DAY AFTER RANDOMIZATION TO SIROLIMUS ONLY GROUP
     Dates: start: 20050101, end: 20050101
  4. SIROLIMUS [Suspect]
     Dates: start: 20050101, end: 20050101
  5. SIROLIMUS [Suspect]
     Dates: start: 20050101, end: 20050101
  6. BASILIXIMAB [Concomitant]
     Dosage: 20 MG ON POSTOPERATIVE DAYS 0 AND 4
     Route: 042
     Dates: start: 20050101, end: 20050101
  7. PREDNISONE [Concomitant]
     Indication: PROPHYLAXIS AGAINST TRANSPLANT REJECTION
     Dates: start: 20050101
  8. LORAZEPAM [Concomitant]
     Dates: start: 20050101
  9. DOXAZOSIN MESYLATE [Concomitant]
     Dates: start: 20050101
  10. RANITIDINE [Concomitant]
     Dates: start: 20050101
  11. SULFAMETHOXAZOLE AND TRIMETHOPRIM [Concomitant]
     Dosage: 800/160 MG DAILY
     Dates: start: 20050101
  12. FLUVASTATIN [Concomitant]
  13. CYCLOSPORINE [Concomitant]
     Indication: PROPHYLAXIS AGAINST TRANSPLANT REJECTION
     Dosage: 9 MG/KG/D, FURTHER ASSESSMENT BASED ON BLOOD LEVEL
     Dates: start: 20050101, end: 20050101
  14. CYCLOSPORINE [Concomitant]
     Dosage: UNSPECIFIED LOW DOSE
     Dates: start: 20050101, end: 20050101
  15. CYCLOSPORINE [Concomitant]
     Dosage: UNSPECIFIED
     Dates: start: 20050101
  16. FUROSEMIDE [Concomitant]
     Dates: start: 20050101

REACTIONS (1)
  - LYMPHOEDEMA [None]
